FAERS Safety Report 9759224 (Version 1)
Quarter: 2013Q1

REPORT INFORMATION
  Report Type: Spontaneous
  Country: US (occurrence: None)
  Receive Date: 20130305
  Receipt Date: 20130305
  Transmission Date: 20140127
  Serious: Yes (Other)
  Sender: FDA-Public Use
  Company Number: 163-21880-12110185(0)

PATIENT
  Age: 55 Year
  Sex: Male

DRUGS (1)
  1. REVLIMID (LENALIDOMIDE) (15 MILLIGRAM, CAPSULES) [Suspect]
     Indication: LYMPHOMA
     Dosage: 15 MG, 1 IN 1 D, PO

REACTIONS (1)
  - Renal failure [None]
